APPROVED DRUG PRODUCT: RANITIDINE HYDROCHLORIDE
Active Ingredient: RANITIDINE HYDROCHLORIDE
Strength: EQ 75MG BASE
Dosage Form/Route: TABLET;ORAL
Application: A076195 | Product #001
Applicant: L PERRIGO CO
Approved: Aug 30, 2002 | RLD: No | RS: No | Type: DISCN